FAERS Safety Report 14078608 (Version 2)
Quarter: 2017Q4

REPORT INFORMATION
  Report Type: Spontaneous
  Country: FR (occurrence: FR)
  Receive Date: 20171012
  Receipt Date: 20171023
  Transmission Date: 20180321
  Serious: Yes (Death, Other)
  Sender: FDA-Public Use
  Company Number: FR-BAYER-2017-188935

PATIENT
  Age: 52 Year
  Sex: Female

DRUGS (1)
  1. STIVARGA [Suspect]
     Active Substance: REGORAFENIB
     Dosage: 120 MG DAILY DOSE FOR 3 WEEKS OUT OF 4

REACTIONS (2)
  - Disease progression [Fatal]
  - Dysphonia [None]

NARRATIVE: CASE EVENT DATE: 201605
